FAERS Safety Report 10076741 (Version 1)
Quarter: 2014Q2

REPORT INFORMATION
  Report Type: Spontaneous
  Country: GB (occurrence: GB)
  Receive Date: 20140414
  Receipt Date: 20140414
  Transmission Date: 20141212
  Serious: Yes (Other)
  Sender: FDA-Public Use
  Company Number: GB-TEVA-473939ISR

PATIENT
  Age: 80 Year
  Sex: Female

DRUGS (7)
  1. WARFARIN [Suspect]
  2. TRAMADOL [Suspect]
     Indication: SKIN ULCER
  3. ACECLOFENAC [Suspect]
  4. FERROUS FUMARATE [Suspect]
     Indication: ANAEMIA
  5. PL 12762/0048 MACRODANTIN CAPSULES 50MG [Suspect]
     Indication: INFECTION
     Route: 048
     Dates: start: 20140306, end: 20140309
  6. OXYCONTIN [Suspect]
  7. ZINC [Suspect]

REACTIONS (2)
  - Vision blurred [Not Recovered/Not Resolved]
  - Macular degeneration [Not Recovered/Not Resolved]
